FAERS Safety Report 5603991-6 (Version None)
Quarter: 2008Q1

REPORT INFORMATION
  Report Type: 
  Country: None (occurrence: None)
  Receive Date: 20080123
  Receipt Date: 20080123
  Transmission Date: 20080703
  Serious: Yes (Hospitalization)
  Sender: FDA-Public Use
  Company Number: None

PATIENT
  Age: 45 Year
  Sex: Female
  Weight: 65 kg

DRUGS (1)
  1. DILAUDID [Suspect]
     Indication: PAIN
     Dosage: 1 MG Q2HOURS IV BOLUS
     Route: 040
     Dates: start: 20070807, end: 20070807

REACTIONS (1)
  - RESPIRATORY DISORDER [None]
